FAERS Safety Report 12410420 (Version 1)
Quarter: 2016Q2

REPORT INFORMATION
  Report Type: Spontaneous
  Country: HU (occurrence: HU)
  Receive Date: 20160527
  Receipt Date: 20160527
  Transmission Date: 20160815
  Serious: Yes (Other)
  Sender: FDA-Public Use
  Company Number: HU-AMGEN-HUNSP2016063390

PATIENT
  Age: 50 Year
  Sex: Female
  Weight: 75 kg

DRUGS (2)
  1. PROCORALAN [Suspect]
     Active Substance: IVABRADINE
     Indication: TACHYCARDIA
     Dosage: 5 MG, BID
     Route: 048
  2. ACE INHIBITORS [Concomitant]
     Active Substance: UNSPECIFIED INGREDIENT
     Dosage: UNK

REACTIONS (3)
  - Loss of consciousness [Recovered/Resolved]
  - Diarrhoea [Unknown]
  - Extrasystoles [Unknown]

NARRATIVE: CASE EVENT DATE: 2016
